FAERS Safety Report 17526535 (Version 1)
Quarter: 2020Q1

REPORT INFORMATION
  Report Type: Spontaneous
  Country: US (occurrence: US)
  Receive Date: 20200311
  Receipt Date: 20200311
  Transmission Date: 20200409
  Serious: Yes (Disabling)
  Sender: FDA-Public Use
  Company Number: None

PATIENT
  Age: 55 Year
  Sex: Female
  Weight: 67.5 kg

DRUGS (1)
  1. PIMECROLIMUS CREAM, 1% [Suspect]
     Active Substance: PIMECROLIMUS
     Indication: RASH
     Route: 061
     Dates: start: 20200305, end: 20200307

REACTIONS (9)
  - Influenza like illness [None]
  - Ear pain [None]
  - Malaise [None]
  - Cough [None]
  - Dyspnoea [None]
  - Chills [None]
  - Dry throat [None]
  - Dysphonia [None]
  - Fatigue [None]

NARRATIVE: CASE EVENT DATE: 20200307
